FAERS Safety Report 9473287 (Version 1)
Quarter: 2013Q3

REPORT INFORMATION
  Report Type: Spontaneous
  Country: US (occurrence: US)
  Receive Date: 20130823
  Receipt Date: 20130823
  Transmission Date: 20140515
  Serious: No
  Sender: FDA-Public Use
  Company Number: US-BRISTOL-MYERS SQUIBB COMPANY-18849786

PATIENT
  Age: 63 Year
  Sex: Male
  Weight: 90.7 kg

DRUGS (9)
  1. SPRYCEL [Suspect]
     Indication: CHRONIC MYELOID LEUKAEMIA
     Route: 048
     Dates: start: 20130326
  2. PRAMIPEXOLE HCL [Concomitant]
  3. THYROID [Concomitant]
  4. ATORVASTATIN [Concomitant]
  5. ZOLOFT [Concomitant]
  6. MULTIVITAMIN [Concomitant]
  7. ACETYLSALICYLIC ACID [Concomitant]
  8. VITAMIN D [Concomitant]
  9. ENALAPRIL [Concomitant]

REACTIONS (1)
  - Joint swelling [Not Recovered/Not Resolved]
